FAERS Safety Report 4375856-1 (Version None)
Quarter: 2004Q2

REPORT INFORMATION
  Report Type: 
  Country: None (occurrence: None)
  Receive Date: 20040607
  Receipt Date: 20040526
  Transmission Date: 20050107
  Serious: Yes (Hospitalization)
  Sender: FDA-Public Use
  Company Number: JAFRA41859

PATIENT
  Age: 60 Year
  Sex: Male

DRUGS (4)
  1. HALDOL [Suspect]
     Indication: PSYCHOTIC DISORDER
     Dosage: 150 MG, 1 IN 30 DAY, INTRAMUSCULAR
     Route: 030
  2. HYDRATE DE CHLORAL (CHLORAL HYDRATE) [Suspect]
     Dosage: 1 DF PER DAY
  3. EQUANIL [Suspect]
     Dosage: 800 MG, IN 1 DAY, ORAL
     Route: 048
  4. ROHYPNOL (FLUNITRAZEPAM) TABLETS [Suspect]
     Dosage: 2 MG, IN 1 DAY, ORAL
     Route: 048

REACTIONS (2)
  - COLITIS [None]
  - PNEUMATOSIS CYSTOIDES INTESTINALIS [None]
